FAERS Safety Report 7412602-9 (Version None)
Quarter: 2011Q2

REPORT INFORMATION
  Report Type: 
  Country: None (occurrence: None)
  Receive Date: 20110405
  Receipt Date: 20110317
  Transmission Date: 20111010
  Serious: Yes (Death)
  Sender: FDA-Public Use
  Company Number: 2011P1005169

PATIENT
  Age: 22 Year
  Sex: Male

DRUGS (8)
  1. ALPRAZOLAM [Suspect]
     Dosage: ;PO
     Route: 048
  2. GABAPENTIN [Suspect]
     Dosage: ;PO
     Route: 048
  3. NAPROXEN [Suspect]
     Dosage: ;PO
     Route: 048
  4. OXYCONTIN [Suspect]
     Dosage: ;PO
     Route: 048
  5. TRAZODONE (NO PREF. NAME) [Suspect]
     Dosage: ;PO
     Route: 048
  6. ZIPRASIDONE (NO PREF. NAME) [Suspect]
     Dosage: ;PO
     Route: 048
  7. CYCLOBENZAPRINE [Suspect]
     Dosage: ;PO
     Route: 048
  8. CLONAZEPAM [Suspect]
     Dosage: ;PO
     Route: 048

REACTIONS (3)
  - COMPLETED SUICIDE [None]
  - CARDIAC ARREST [None]
  - RESPIRATORY ARREST [None]
